FAERS Safety Report 12257934 (Version 3)
Quarter: 2016Q2

REPORT INFORMATION
  Report Type: Spontaneous
  Country: US (occurrence: US)
  Receive Date: 20160412
  Receipt Date: 20160510
  Transmission Date: 20160815
  Serious: Yes (Other)
  Sender: FDA-Public Use
  Company Number: US-BAYER-2016-068603

PATIENT
  Age: 39 Year
  Sex: Female

DRUGS (1)
  1. SKYLA [Suspect]
     Active Substance: LEVONORGESTREL
     Indication: CONTRACEPTION
     Dosage: 14 MCG/24HR, CONT
     Route: 015
     Dates: start: 20160329, end: 20160404

REACTIONS (6)
  - Device defective [None]
  - Device difficult to use [None]
  - Pain [Recovered/Resolved]
  - Device dislocation [Recovered/Resolved]
  - Device deployment issue [None]
  - Expired device used [None]

NARRATIVE: CASE EVENT DATE: 20160329
